FAERS Safety Report 9778932 (Version 2)
Quarter: 2014Q1

REPORT INFORMATION
  Report Type: Spontaneous
  Country: US (occurrence: US)
  Receive Date: 20131223
  Receipt Date: 20140127
  Transmission Date: 20141002
  Serious: Yes (Hospitalization)
  Sender: FDA-Public Use
  Company Number: US-B.I. PHARMACEUTICALS,INC./RIDGEFIELD-2013-BI-43428BP

PATIENT
  Sex: Female
  Weight: 69.85 kg

DRUGS (11)
  1. PRADAXA [Suspect]
     Indication: ATRIAL FIBRILLATION
     Dosage: 150 MG
     Dates: start: 20110906
  2. ZYLOPRIM [Concomitant]
     Dosage: 200 MG
  3. SLOW FE [Concomitant]
     Dosage: 140 MG
  4. PRINIVIL [Concomitant]
     Dosage: 20 MG
  5. MEVACOR [Concomitant]
     Dosage: 40 MG
  6. LOPRESSOR [Concomitant]
     Dosage: 100 MG
  7. DEMADEX [Concomitant]
     Dosage: 20 MG
  8. OS-CAL WITH D [Concomitant]
  9. ULTRAM [Concomitant]
     Indication: PAIN
  10. IMODIUM [Concomitant]
  11. VENTOLIN [Concomitant]
     Indication: DYSPNOEA
     Route: 055

REACTIONS (1)
  - Gastrointestinal haemorrhage [Unknown]
